FAERS Safety Report 6749813-1 (Version None)
Quarter: 2010Q2

REPORT INFORMATION
  Report Type: 
  Country: None (occurrence: None)
  Receive Date: 20100601
  Receipt Date: 20100521
  Transmission Date: 20101027
  Serious: Yes (Other)
  Sender: FDA-Public Use
  Company Number: US-MERCK-1005USA03246

PATIENT
  Age: 5 Year
  Sex: Male

DRUGS (1)
  1. SINGULAIR [Suspect]
     Indication: ASTHMA
     Route: 048

REACTIONS (7)
  - AGGRESSION [None]
  - ANGER [None]
  - ASOCIAL BEHAVIOUR [None]
  - EMOTIONAL DISORDER [None]
  - MOOD SWINGS [None]
  - PERSONALITY CHANGE [None]
  - PHYSICAL ASSAULT [None]
